FAERS Safety Report 21417166 (Version 4)
Quarter: 2023Q2

REPORT INFORMATION
  Report Type: Other
  Country: JP (occurrence: JP)
  Receive Date: 20221006
  Receipt Date: 20230407
  Transmission Date: 20230722
  Serious: Yes (Other)
  Sender: FDA-Public Use
  Company Number: JP-CHUGAI-2022003227

PATIENT
  Age: 81 Year
  Sex: Male
  Weight: 58.2 kg

DRUGS (8)
  1. ATEZOLIZUMAB [Suspect]
     Active Substance: ATEZOLIZUMAB
     Indication: Lung adenocarcinoma
     Dosage: 1200 MILLIGRAM
     Route: 041
     Dates: start: 20210921
  2. ATEZOLIZUMAB [Suspect]
     Active Substance: ATEZOLIZUMAB
     Dosage: 1200 MILLIGRAM, ONCE/3WEEKS
     Route: 041
     Dates: start: 20221017, end: 20230130
  3. BEVACIZUMAB [Suspect]
     Active Substance: BEVACIZUMAB
     Indication: Lung adenocarcinoma
     Dosage: 870 MILLIGRAM
     Route: 041
     Dates: start: 20210921
  4. BEVACIZUMAB [Suspect]
     Active Substance: BEVACIZUMAB
     Dosage: 870 MILLIGRAM
     Route: 041
     Dates: start: 2022
  5. BEVACIZUMAB [Suspect]
     Active Substance: BEVACIZUMAB
     Dosage: 870 MILLIGRAM, ONCE/3WEEKS
     Route: 041
     Dates: start: 20221017, end: 20230130
  6. CARBOPLATIN [Suspect]
     Active Substance: CARBOPLATIN
     Indication: Lung adenocarcinoma
     Dosage: 280 MILLIGRAM
     Route: 041
     Dates: start: 20210921, end: 20211101
  7. PACLITAXEL [Suspect]
     Active Substance: PACLITAXEL
     Indication: Lung adenocarcinoma
     Dosage: 195 MILLIGRAM,
     Route: 041
     Dates: start: 20210921, end: 20211101
  8. ZOLPIDEM TARTRATE [Suspect]
     Active Substance: ZOLPIDEM TARTRATE
     Indication: Product used for unknown indication
     Dosage: UNK
     Route: 065

REACTIONS (15)
  - Adrenal insufficiency [Not Recovered/Not Resolved]
  - Immune system disorder [Unknown]
  - Proteinuria [Recovered/Resolved]
  - Hypertension [Not Recovered/Not Resolved]
  - Hyperkalaemia [Recovering/Resolving]
  - Delirium [Recovered/Resolved]
  - Gingival bleeding [Not Recovered/Not Resolved]
  - Constipation [Recovered/Resolved]
  - Alopecia [Recovering/Resolving]
  - Stomatitis [Recovered/Resolved]
  - Epistaxis [Recovered/Resolved]
  - Dry skin [Recovered/Resolved]
  - Oedema [Not Recovered/Not Resolved]
  - Blood creatinine increased [Not Recovered/Not Resolved]
  - Tracheal haemorrhage [Not Recovered/Not Resolved]

NARRATIVE: CASE EVENT DATE: 20210922
